FAERS Safety Report 20691597 (Version 1)
Quarter: 2022Q2

REPORT INFORMATION
  Report Type: Spontaneous
  Country: CN (occurrence: CN)
  Receive Date: 20220408
  Receipt Date: 20220408
  Transmission Date: 20220720
  Serious: Yes (Hospitalization, Other)
  Sender: FDA-Public Use
  Company Number: CN-009507513-2204CHN001209

PATIENT
  Age: 80 Year
  Sex: Female
  Weight: 60 kg

DRUGS (2)
  1. CILASTATIN SODIUM\IMIPENEM [Suspect]
     Active Substance: CILASTATIN SODIUM\IMIPENEM
     Indication: Anti-infective therapy
     Dosage: 1 GRAM, Q8H
     Route: 041
     Dates: start: 20220308, end: 20220320
  2. SODIUM CHLORIDE [Concomitant]
     Active Substance: SODIUM CHLORIDE
     Dosage: 150 MILLILITER, Q8H
     Route: 041
     Dates: start: 20220308

REACTIONS (4)
  - Unresponsive to stimuli [Recovered/Resolved]
  - Trismus [Recovered/Resolved]
  - Eye movement disorder [Recovered/Resolved]
  - Tonic convulsion [Recovering/Resolving]

NARRATIVE: CASE EVENT DATE: 20220320
